FAERS Safety Report 5958980-9 (Version None)
Quarter: 2008Q4

REPORT INFORMATION
  Report Type: 
  Country: None (occurrence: None)
  Receive Date: 20081117
  Receipt Date: 20081031
  Transmission Date: 20090506
  Serious: Yes (Disabling)
  Sender: FDA-Public Use
  Company Number: DSA_32652_2008

PATIENT
  Age: 80 Year
  Sex: Male

DRUGS (4)
  1. DILTIAZEM [Suspect]
     Indication: DRUG USE FOR UNKNOWN INDICATION
     Dosage: DF ORAL
     Route: 048
  2. ROXITHROMYCIN (ROXITHROMYCIN) [Suspect]
     Indication: NASOPHARYNGITIS
     Dosage: DF
  3. CANDESARTAN [Concomitant]
  4. LOXOPROFEN [Concomitant]

REACTIONS (6)
  - BLOOD CREATININE INCREASED [None]
  - BLOOD UREA INCREASED [None]
  - BRADYCARDIA [None]
  - HYPERKALAEMIA [None]
  - NODAL RHYTHM [None]
  - SINUS ARREST [None]
